FAERS Safety Report 19617998 (Version 6)
Quarter: 2021Q4

REPORT INFORMATION
  Report Type: Report from Study
  Country: DE (occurrence: DE)
  Receive Date: 20210727
  Receipt Date: 20211213
  Transmission Date: 20220303
  Serious: Yes (Life-Threatening, Hospitalization, Other)
  Sender: FDA-Public Use
  Company Number: DE-BRISTOL-MYERS SQUIBB COMPANY-BMS-2021-072481

PATIENT
  Age: 60 Year
  Sex: Female
  Weight: 80 kg

DRUGS (6)
  1. INVESTIGATIONAL PRODUCT [Suspect]
     Active Substance: INVESTIGATIONAL PRODUCT
     Indication: Metastatic malignant melanoma
     Dosage: 0.48 MILLIGRAM
     Route: 042
     Dates: start: 20200825, end: 20210525
  2. NIVOLUMAB [Suspect]
     Active Substance: NIVOLUMAB
     Indication: Malignant melanoma
     Dosage: 360 MILLIGRAM
     Route: 042
     Dates: start: 20200825, end: 20210525
  3. NARATRIPTAN [Concomitant]
     Active Substance: NARATRIPTAN HYDROCHLORIDE
     Indication: Product used for unknown indication
     Dosage: 2.5 MILLIGRAM
     Route: 048
     Dates: start: 2010
  4. BIOSAN COMPLEX [Concomitant]
     Indication: Product used for unknown indication
     Dosage: 1 DOSAGE FORM = 1 UNITS NOS
     Route: 048
     Dates: start: 20201001
  5. COMIRNATY [Concomitant]
     Active Substance: TOZINAMERAN
     Indication: Prophylaxis
     Dosage: UNK
     Route: 030
     Dates: start: 20210421
  6. COMIRNATY [Concomitant]
     Active Substance: TOZINAMERAN
     Dosage: UNK
     Route: 030
     Dates: start: 20210602

REACTIONS (1)
  - Autoimmune colitis [Recovered/Resolved]

NARRATIVE: CASE EVENT DATE: 20210723
